FAERS Safety Report 6097366-6 (Version None)
Quarter: 2009Q1

REPORT INFORMATION
  Report Type: 
  Country: None (occurrence: None)
  Receive Date: 20090227
  Receipt Date: 20080108
  Transmission Date: 20090719
  Serious: No
  Sender: FDA-Public Use
  Company Number: A0701986A

PATIENT
  Age: 44 Year
  Sex: Female

DRUGS (3)
  1. IMITREX [Suspect]
     Indication: MIGRAINE
     Route: 042
     Dates: start: 19920101
  2. IMITREX [Suspect]
     Dosage: 200MG PER DAY
     Route: 048
  3. PROPRANOLOL [Concomitant]

REACTIONS (1)
  - HEADACHE [None]
